FAERS Safety Report 9206780 (Version 2)
Quarter: 2013Q4

REPORT INFORMATION
  Report Type: Spontaneous
  Country: US (occurrence: US)
  Receive Date: 20130403
  Receipt Date: 20131206
  Transmission Date: 20140711
  Serious: Yes (Hospitalization, Other)
  Sender: FDA-Public Use
  Company Number: US-BAYER-2013-040483

PATIENT
  Age: 14 Year
  Sex: Female

DRUGS (7)
  1. YAZ [Suspect]
     Dosage: UNK
     Dates: start: 2007, end: 2009
  2. CEFDINIR [Concomitant]
     Dosage: 300 MG, UNK
  3. SULFACETAMIDE [Concomitant]
     Dosage: 10 UNK, UNK
     Route: 047
  4. VIGAMOX [Concomitant]
     Dosage: 0.5 UNK, UNK
  5. ZOFRAN [Concomitant]
     Indication: NAUSEA
  6. MORPHINE [Concomitant]
  7. KETOROLAC [Concomitant]
     Indication: PROCEDURAL PAIN

REACTIONS (2)
  - Cholecystectomy [None]
  - Cholecystitis acute [None]
